FAERS Safety Report 8257529-8 (Version None)
Quarter: 2012Q2

REPORT INFORMATION
  Report Type: 
  Country: None (occurrence: None)
  Receive Date: 20120403
  Receipt Date: 20120319
  Transmission Date: 20120825
  Serious: Yes (Congenital Anomaly, Other)
  Sender: FDA-Public Use
  Company Number: IL-WATSON-2012-05232

PATIENT

DRUGS (2)
  1. TOPIRAMATE [Suspect]
     Indication: PRODUCT USED FOR UNKNOWN INDICATION
     Dosage: 50 MG, DAILY
     Route: 064
  2. VALPROATE SODIUM [Suspect]
     Indication: PRODUCT USED FOR UNKNOWN INDICATION
     Dosage: 800 MG, DAILY
     Route: 064

REACTIONS (3)
  - CONVULSION NEONATAL [None]
  - CEREBRAL CYST [None]
  - FOETAL EXPOSURE DURING PREGNANCY [None]
